FAERS Safety Report 12632011 (Version 4)
Quarter: 2016Q4

REPORT INFORMATION
  Report Type: Spontaneous
  Country: US (occurrence: US)
  Receive Date: 20160808
  Receipt Date: 20161005
  Transmission Date: 20170207
  Serious: No
  Sender: FDA-Public Use
  Company Number: US-BEH-2016061660

PATIENT
  Sex: Female
  Weight: 116.57 kg

DRUGS (28)
  1. OXYBUTYNIN CHLORIDE. [Concomitant]
     Active Substance: OXYBUTYNIN CHLORIDE
  2. ALLEGRA [Concomitant]
     Active Substance: FEXOFENADINE HYDROCHLORIDE
  3. MUCINEX D [Concomitant]
     Active Substance: GUAIFENESIN\PSEUDOEPHEDRINE HYDROCHLORIDE
  4. ACETAMINOPHEN. [Concomitant]
     Active Substance: ACETAMINOPHEN
  5. ACIDOPHILUS-PECTIN [Concomitant]
  6. DILTIAZEM CD [Concomitant]
     Active Substance: DILTIAZEM
  7. XARELTO [Concomitant]
     Active Substance: RIVAROXABAN
  8. HIZENTRA [Suspect]
     Active Substance: HUMAN IMMUNOGLOBULIN G
     Dosage: UNK
     Route: 058
  9. HIZENTRA [Suspect]
     Active Substance: HUMAN IMMUNOGLOBULIN G
     Dosage: 12 G, QW
     Route: 058
  10. AZITHROMYCIN ANHYDROUS. [Concomitant]
     Active Substance: AZITHROMYCIN ANHYDROUS
  11. AZELASTINE [Concomitant]
     Active Substance: AZELASTINE
  12. COMBIVENT RESPIMAT [Concomitant]
     Active Substance: ALBUTEROL SULFATE\IPRATROPIUM BROMIDE
  13. LIDOCAINE. [Concomitant]
     Active Substance: LIDOCAINE
  14. EPIPEN [Concomitant]
     Active Substance: EPINEPHRINE
  15. GAVISCON [Concomitant]
     Active Substance: ALUMINUM HYDROXIDE\MAGNESIUM CARBONATE
  16. FLONASE [Concomitant]
     Active Substance: FLUTICASONE PROPIONATE
  17. CENTRUM SILVER [Concomitant]
     Active Substance: MINERALS\VITAMINS
  18. CALTRATE+D [Concomitant]
  19. HIZENTRA [Suspect]
     Active Substance: HUMAN IMMUNOGLOBULIN G
     Dosage: 12 G, QW
     Route: 058
  20. FLUOROPLEX [Concomitant]
     Active Substance: FLUOROURACIL
  21. DIPHENHYDRAMINE. [Concomitant]
     Active Substance: DIPHENHYDRAMINE
  22. LEVOTHYROXINE. [Concomitant]
     Active Substance: LEVOTHYROXINE
  23. GLUCOSAMINE [Concomitant]
     Active Substance: GLUCOSAMINE
  24. CRESTOR [Concomitant]
     Active Substance: ROSUVASTATIN CALCIUM
  25. VITAMIN B12-FOLIC ACID [Concomitant]
  26. HIZENTRA [Suspect]
     Active Substance: HUMAN IMMUNOGLOBULIN G
     Indication: IMMUNODEFICIENCY COMMON VARIABLE
     Route: 058
  27. ASMANEX [Concomitant]
     Active Substance: MOMETASONE FUROATE
  28. TIKOSYN [Concomitant]
     Active Substance: DOFETILIDE

REACTIONS (7)
  - Infusion site discolouration [Unknown]
  - Device infusion issue [Unknown]
  - Infusion site extravasation [Unknown]
  - Infusion site haemorrhage [Unknown]
  - Contusion [Unknown]
  - Infusion site induration [Unknown]
  - Product closure removal difficult [Unknown]
